FAERS Safety Report 5457276-1 (Version None)
Quarter: 2007Q3

REPORT INFORMATION
  Report Type: 
  Country: None (occurrence: None)
  Receive Date: 20070918
  Receipt Date: 20070702
  Transmission Date: 20080115
  Serious: Yes (Hospitalization, Other)
  Sender: FDA-Public Use
  Company Number: US-ASTRAZENECA-2007UW01965

PATIENT
  Sex: Female
  Weight: 75.9 kg

DRUGS (7)
  1. SEROQUEL [Suspect]
     Indication: BIPOLAR DISORDER
     Route: 048
     Dates: start: 20020101, end: 20050223
  2. ZYPREXA [Concomitant]
     Dates: start: 20050223
  3. AVANDAMET [Concomitant]
     Dates: start: 20030223
  4. METFORMIN HCL [Concomitant]
     Dates: start: 20050301
  5. AMARYL [Concomitant]
     Dates: start: 20050308
  6. LANTUS [Concomitant]
     Dates: start: 20060707
  7. RISPERDAL [Concomitant]
     Dates: start: 20021120, end: 20030611

REACTIONS (3)
  - DIABETES MELLITUS [None]
  - DIABETIC KETOACIDOSIS [None]
  - HYPERGLYCAEMIA [None]
